FAERS Safety Report 20553960 (Version 2)
Quarter: 2022Q2

REPORT INFORMATION
  Report Type: Spontaneous
  Country: JP (occurrence: JP)
  Receive Date: 20220304
  Receipt Date: 20220404
  Transmission Date: 20220721
  Serious: Yes (Death, Hospitalization, Other)
  Sender: FDA-Public Use
  Company Number: JP-MSD-M2022-08641

PATIENT
  Age: 50 Year
  Sex: Female

DRUGS (2)
  1. KEYTRUDA [Suspect]
     Active Substance: PEMBROLIZUMAB
     Indication: Uterine cancer
     Dosage: 200 MILLIGRAM, Q3W
     Route: 041
     Dates: start: 20220131, end: 20220223
  2. LENVATINIB MESYLATE [Suspect]
     Active Substance: LENVATINIB MESYLATE
     Indication: Uterine cancer
     Dosage: 20 MILLIGRAM, QD
     Route: 048
     Dates: start: 20220131, end: 20220223

REACTIONS (11)
  - Fistula [Fatal]
  - Capillary permeability increased [Fatal]
  - Respiratory failure [Fatal]
  - Shock [Unknown]
  - Malignant neoplasm progression [Unknown]
  - Malignant ascites [Unknown]
  - Hypothyroidism [Recovering/Resolving]
  - Cortisol increased [Unknown]
  - Hypertension [Recovering/Resolving]
  - Arthralgia [Recovering/Resolving]
  - Pyrexia [Recovering/Resolving]

NARRATIVE: CASE EVENT DATE: 20220101
